FAERS Safety Report 7476453-1 (Version None)
Quarter: 2011Q2

REPORT INFORMATION
  Report Type: 
  Country: None (occurrence: None)
  Receive Date: 20110512
  Receipt Date: 20110506
  Transmission Date: 20111010
  Serious: Yes (Other)
  Sender: FDA-Public Use
  Company Number: US-PFIZER INC-2011065389

PATIENT
  Sex: Male
  Weight: 95.238 kg

DRUGS (1)
  1. ADVIL ALLERGY SINUS [Suspect]
     Indication: NASOPHARYNGITIS
     Dosage: UNK, 3X/DAY
     Route: 048
     Dates: start: 20110320, end: 20110322

REACTIONS (5)
  - HYPERSENSITIVITY [None]
  - PRURITUS [None]
  - RASH GENERALISED [None]
  - URTICARIA [None]
  - INFLAMMATION [None]
